FAERS Safety Report 10901101 (Version 2)
Quarter: 2015Q1

REPORT INFORMATION
  Report Type: Spontaneous
  Country: US (occurrence: US)
  Receive Date: 20150310
  Receipt Date: 20150317
  Transmission Date: 20150721
  Serious: Yes (Hospitalization, Other)
  Sender: FDA-Public Use
  Company Number: US-BEH-2015049124

PATIENT
  Age: 68 Year
  Sex: Male
  Weight: 99 kg

DRUGS (12)
  1. MULTIVITAMINS [Concomitant]
     Active Substance: VITAMINS
  2. ATENOLOL AND CHLORTHALIDONE [Concomitant]
     Active Substance: ATENOLOL\CHLORTHALIDONE
  3. SODIUM CHLORIDE. [Concomitant]
     Active Substance: SODIUM CHLORIDE
  4. BERINERT [Suspect]
     Active Substance: HUMAN C1-ESTERASE INHIBITOR
     Indication: HEREDITARY ANGIOEDEMA
     Dosage: 500 UNIT VIAL; 30-OCT-2014-ONGOING
     Route: 042
  5. BERINERT [Suspect]
     Active Substance: HUMAN C1-ESTERASE INHIBITOR
     Dosage: STARTED IN 2012; 21-FEB-2015
  6. LIDOCAINE PRILOCAINE [Concomitant]
  7. HYDROCODONE [Concomitant]
     Active Substance: HYDROCODONE
     Dosage: COMPOUND
  8. BERINERT [Suspect]
     Active Substance: HUMAN C1-ESTERASE INHIBITOR
     Indication: COMPLEMENT FACTOR ABNORMAL
     Dosage: 500 UNIT VIAL; 2000 UNITS
     Route: 042
  9. EPIPEN [Concomitant]
     Active Substance: EPINEPHRINE
  10. LIDOCAINE PRILOCAINE [Concomitant]
     Dosage: 2.5%/2.5%
  11. FIRAZYR [Concomitant]
     Active Substance: ICATIBANT ACETATE
  12. TYLENOL [Concomitant]
     Active Substance: ACETAMINOPHEN

REACTIONS (4)
  - Respiratory syncytial virus infection [Recovering/Resolving]
  - Hereditary angioedema [Recovering/Resolving]
  - Chronic obstructive pulmonary disease [Recovering/Resolving]
  - Laryngitis [Recovering/Resolving]

NARRATIVE: CASE EVENT DATE: 20150220
